FAERS Safety Report 5498603-9 (Version None)
Quarter: 2007Q4

REPORT INFORMATION
  Report Type: 
  Country: None (occurrence: None)
  Receive Date: 20071025
  Receipt Date: 20071025
  Transmission Date: 20080405
  Serious: Yes (Other)
  Sender: FDA-Public Use
  Company Number: None

PATIENT
  Age: 29 Year
  Sex: Female
  Weight: 81.6475 kg

DRUGS (1)
  1. ALEVE 8 HOUR GEL CAPSULES ALEVE -BRAND NAME- [Suspect]
     Indication: BACK PAIN
     Dosage: 1-2 CAPSULES 1-2 TIMES PER DAY
     Dates: start: 20070508, end: 20071017

REACTIONS (5)
  - DYSPAREUNIA [None]
  - SKIN DISORDER [None]
  - VAGINAL PAIN [None]
  - VULVOVAGINAL BURNING SENSATION [None]
  - VULVOVAGINAL PRURITUS [None]
